FAERS Safety Report 7150669-6 (Version None)
Quarter: 2010Q4

REPORT INFORMATION
  Report Type: 
  Country: None (occurrence: None)
  Receive Date: 20101210
  Receipt Date: 20101201
  Transmission Date: 20110411
  Serious: Yes (Other)
  Sender: FDA-Public Use
  Company Number: IE-PFIZER INC-2010162328

PATIENT
  Age: 12 Year
  Sex: Male

DRUGS (1)
  1. BENEFIX [Suspect]
     Dosage: UNK IU, UNK

REACTIONS (4)
  - CATHETER SITE PAIN [None]
  - NAUSEA [None]
  - RASH [None]
  - VOMITING [None]
